FAERS Safety Report 24842715 (Version 1)
Quarter: 2025Q1

REPORT INFORMATION
  Report Type: Report from Study
  Country: US (occurrence: US)
  Receive Date: 20250115
  Receipt Date: 20250115
  Transmission Date: 20250409
  Serious: Yes (Life-Threatening, Hospitalization)
  Sender: AMGEN
  Company Number: US-AMGEN-USASL2025004660

PATIENT
  Sex: Female

DRUGS (2)
  1. TEPEZZA [Suspect]
     Active Substance: TEPROTUMUMAB-TRBW
     Indication: Eyelid retraction
     Route: 040
     Dates: start: 20241118
  2. TEPEZZA [Suspect]
     Active Substance: TEPROTUMUMAB-TRBW
     Indication: Lagophthalmos
     Route: 040
     Dates: start: 20241230

REACTIONS (1)
  - Diabetic ketoacidosis [Unknown]
